FAERS Safety Report 8811040 (Version 3)
Quarter: 2012Q4

REPORT INFORMATION
  Report Type: 
  Country: US (occurrence: US)
  Receive Date: 20120927
  Receipt Date: 20121212
  Transmission Date: 20130627
  Serious: Yes (Life-Threatening, Hospitalization, Other)
  Sender: FDA-Public Use
  Company Number: US-BAYER-2012-100019

PATIENT
  Age: 33 Year
  Sex: Female

DRUGS (21)
  1. YAZ [Suspect]
     Indication: MENSTRUAL CYCLE MANAGEMENT
     Dosage: UNK
     Dates: start: 200611, end: 200711
  2. YAZ [Suspect]
     Indication: ACNE
  3. YAZ [Suspect]
     Indication: PREMENSTRUAL SYNDROME
  4. CIPRO [Concomitant]
  5. LEVOTHROID [Concomitant]
  6. GLUCOPHAGE [Concomitant]
     Dosage: 500 mg, BID
     Dates: start: 20070214
  7. PREDNISONE [Concomitant]
  8. TERAZOL [Concomitant]
  9. PROVENTIL [Concomitant]
  10. CYCLOBENZAPRINE [Concomitant]
     Dosage: 5 mg, UNK
     Route: 048
     Dates: start: 20070119
  11. LEVOXYL [Concomitant]
     Dosage: 0.137 mg, UNK
     Route: 048
     Dates: start: 20070119
  12. LEVOXYL [Concomitant]
     Dosage: 0.15 mg, daily
     Dates: start: 20070214
  13. METFORMIN [Concomitant]
     Dosage: 500 mg, UNK
     Route: 048
     Dates: start: 20070119
  14. NEXIUM [Concomitant]
     Dosage: 40 mg, UNK
     Route: 048
     Dates: start: 20070119
  15. FLEXERIL [Concomitant]
     Dosage: UNK UNK, PRN
     Dates: start: 20070214
  16. PRILOSEC [Concomitant]
     Dosage: 20 mg, daily
     Dates: start: 20070214
  17. ADVAIR [Concomitant]
  18. LISINOPRIL [Concomitant]
     Indication: HYPERTENSION
     Dosage: UNK
  19. SIMVASTATIN [Concomitant]
     Indication: HIGH CHOLESTEROL
     Dosage: UNK
  20. LASIX [Concomitant]
     Indication: FLUID RETENTION
     Dosage: UNK
  21. VICODIN [Concomitant]
     Indication: PAIN MANAGEMENT
     Dosage: UNK

REACTIONS (21)
  - Pulmonary embolism [None]
  - Lung disorder [None]
  - Bipolar disorder [None]
  - Staphylococcal infection [None]
  - Pneumonia [None]
  - Renal failure [None]
  - Malaise [None]
  - Cough [None]
  - Dyspnoea [None]
  - Chest pain [None]
  - Chest discomfort [None]
  - Bronchitis [None]
  - Depression [None]
  - Anxiety [None]
  - Pain [None]
  - Injury [None]
  - General physical health deterioration [None]
  - Anhedonia [None]
  - Emotional distress [None]
  - Anxiety [None]
  - Off label use [None]
